FAERS Safety Report 23646777 (Version 1)
Quarter: 2024Q1

REPORT INFORMATION
  Report Type: Other
  Country: PL (occurrence: PL)
  Receive Date: 20240319
  Receipt Date: 20240319
  Transmission Date: 20240410
  Serious: Yes (Hospitalization)
  Sender: FDA-Public Use
  Company Number: PL-BoehringerIngelheim-2024-BI-013495

PATIENT
  Age: 33 Year
  Sex: Female

DRUGS (1)
  1. ALTEPLASE [Suspect]
     Active Substance: ALTEPLASE
     Indication: Ischaemic stroke
     Dosage: ALTEPLASE WAS ADMINISTERED IN THE TOTAL DOSE 74.5 MG (0.9 MG/KG MC.) AT 7:27 P.M.
     Route: 065

REACTIONS (3)
  - Central nervous system lesion [Unknown]
  - Haemorrhagic transformation stroke [Unknown]
  - Maternal exposure during pregnancy [Unknown]
